FAERS Safety Report 9333789 (Version 1)
Quarter: 2013Q2

REPORT INFORMATION
  Report Type: Spontaneous
  Country: CO (occurrence: CO)
  Receive Date: 20130606
  Receipt Date: 20130606
  Transmission Date: 20140414
  Serious: Yes (Other)
  Sender: FDA-Public Use
  Company Number: CO-UCBSA-085090

PATIENT
  Age: 13 Year
  Sex: Female

DRUGS (2)
  1. VIMPAT [Suspect]
     Indication: EPILEPSY
     Dosage: DOSE STRENGTH: 50 MG / EACH 12 HOURS
     Route: 048
     Dates: start: 20120802, end: 20120830
  2. PHENOBARBITAL [Concomitant]

REACTIONS (1)
  - Convulsion [Unknown]
